FAERS Safety Report 20611189 (Version 1)
Quarter: 2022Q1

REPORT INFORMATION
  Report Type: Spontaneous
  Country: US (occurrence: None)
  Receive Date: 20220317
  Receipt Date: 20220317
  Transmission Date: 20220423
  Serious: No
  Sender: FDA-Public Use
  Company Number: None

PATIENT
  Age: 35 Year
  Sex: Female

DRUGS (1)
  1. BOSENTAN [Suspect]
     Active Substance: BOSENTAN
     Indication: Pulmonary hypertension
     Dosage: FREQUENCY : TWICE A DAY;?
     Route: 048
     Dates: start: 20200325

REACTIONS (5)
  - Swelling face [None]
  - Peripheral swelling [None]
  - Ulcer [None]
  - Angioedema [None]
  - Pain in extremity [None]

NARRATIVE: CASE EVENT DATE: 20220225
